FAERS Safety Report 7253640-9 (Version None)
Quarter: 2011Q1

REPORT INFORMATION
  Report Type: 
  Country: None (occurrence: None)
  Receive Date: 20110129
  Receipt Date: 20100319
  Transmission Date: 20110831
  Serious: No
  Sender: FDA-Public Use
  Company Number: US-ABBOTT-10P-163-0633476-00

PATIENT
  Sex: Female
  Weight: 56.75 kg

DRUGS (2)
  1. HUMIRA [Suspect]
     Indication: CROHN'S DISEASE
     Dosage: DAY 1 LOADING DOSE
     Dates: start: 20100122, end: 20100122
  2. HUMIRA [Suspect]
     Dosage: DAY 2 LOADING DOSE
     Dates: start: 20100123

REACTIONS (1)
  - ALOPECIA [None]
